FAERS Safety Report 14929018 (Version 3)
Quarter: 2018Q2

REPORT INFORMATION
  Report Type: Spontaneous
  Country: US (occurrence: US)
  Receive Date: 20180523
  Receipt Date: 20180530
  Transmission Date: 20180711
  Serious: No
  Sender: FDA-Public Use
  Company Number: US-PFIZER INC-2018208773

PATIENT
  Age: 39 Year
  Sex: Male

DRUGS (1)
  1. TESTOSTERONE CIPIONATE [Suspect]
     Active Substance: TESTOSTERONE
     Dosage: 75 MG, ONCE A WEEK

REACTIONS (4)
  - Malaise [Unknown]
  - Feeling abnormal [Unknown]
  - Product colour issue [Unknown]
  - Discomfort [Unknown]
